FAERS Safety Report 8334773-2 (Version None)
Quarter: 2012Q2

REPORT INFORMATION
  Report Type: 
  Country: None (occurrence: None)
  Receive Date: 20120503
  Receipt Date: 20120426
  Transmission Date: 20120825
  Serious: Yes (Other)
  Sender: FDA-Public Use
  Company Number: SE-UCBSA-049763

PATIENT
  Age: 59 Year
  Sex: Female
  Weight: 68 kg

DRUGS (5)
  1. ALVEDON [Concomitant]
  2. CORTISONE ACETATE [Concomitant]
  3. BETAPRED [Concomitant]
     Dosage: DOSE PER INTAKE: 15PCS
  4. CLARITIN [Concomitant]
  5. CIMZIA [Suspect]
     Indication: MUSCULOSKELETAL PAIN
     Route: 058
     Dates: start: 20111229, end: 20120201

REACTIONS (9)
  - VIRAL INFECTION [None]
  - PYREXIA [None]
  - GASTRIC DISORDER [None]
  - FATIGUE [None]
  - DIZZINESS [None]
  - AUTOIMMUNE THYROIDITIS [None]
  - NAUSEA [None]
  - SOMNOLENCE [None]
  - HYPOAESTHESIA ORAL [None]
